FAERS Safety Report 24177382 (Version 1)
Quarter: 2024Q3

REPORT INFORMATION
  Report Type: Spontaneous
  Country: US (occurrence: US)
  Receive Date: 20240806
  Receipt Date: 20240806
  Transmission Date: 20241017
  Serious: No
  Sender: ABBVIE
  Company Number: US-ABBVIE-5859223

PATIENT
  Sex: Female

DRUGS (2)
  1. HUMIRA [Suspect]
     Active Substance: ADALIMUMAB
     Indication: Autoimmune disorder
     Route: 058
     Dates: start: 202401, end: 202404
  2. HUMIRA [Suspect]
     Active Substance: ADALIMUMAB
     Indication: Rheumatoid arthritis

REACTIONS (8)
  - Constipation [Unknown]
  - Drug ineffective [Unknown]
  - Lethargy [Unknown]
  - Abdominal pain [Unknown]
  - Flatulence [Unknown]
  - Dehydration [Unknown]
  - Diarrhoea [Unknown]
  - Respiratory tract infection [Unknown]

NARRATIVE: CASE EVENT DATE: 20240101
